FAERS Safety Report 19084046 (Version 1)
Quarter: 2021Q2

REPORT INFORMATION
  Report Type: Spontaneous
  Country: US (occurrence: US)
  Receive Date: 20210401
  Receipt Date: 20210401
  Transmission Date: 20210717
  Serious: Yes (Other)
  Sender: FDA-Public Use
  Company Number: US-FRESENIUS KABI-FK202103332

PATIENT
  Age: 15 Year
  Sex: Female

DRUGS (2)
  1. METHOTREXATE (MANUFACTURER UNKNOWN) [Suspect]
     Active Substance: METHOTREXATE
     Indication: VAGINAL INFECTION
     Dosage: 25 MG SUBCUTANEOUS INJECTION PER WEEK
     Route: 058
  2. INFLIXIMAB [Concomitant]
     Active Substance: INFLIXIMAB
     Indication: PRODUCT USED FOR UNKNOWN INDICATION
     Route: 065

REACTIONS (3)
  - Streptococcal infection [Unknown]
  - Staphylococcal sepsis [Unknown]
  - Crohn^s disease [Unknown]
